FAERS Safety Report 7945390-8 (Version None)
Quarter: 2011Q4

REPORT INFORMATION
  Report Type: 
  Country: None (occurrence: None)
  Receive Date: 20111129
  Receipt Date: 20110729
  Transmission Date: 20120403
  Serious: No
  Sender: FDA-Public Use
  Company Number: US-GLAXOSMITHKLINE-A0939113A

PATIENT
  Age: 55 Year
  Sex: Female

DRUGS (3)
  1. BUPROPION HYDROCHLORIDE [Suspect]
     Indication: DEPRESSION
     Dosage: 200MG TWICE PER DAY
     Route: 048
     Dates: start: 20110708
  2. CYTOMEL [Concomitant]
  3. SYNTHROID [Concomitant]

REACTIONS (3)
  - MOOD SWINGS [None]
  - DRUG INEFFECTIVE [None]
  - FEELING ABNORMAL [None]
